FAERS Safety Report 9167680 (Version 1)
Quarter: 2013Q1

REPORT INFORMATION
  Report Type: Spontaneous
  Country: IN (occurrence: None)
  Receive Date: 20130307
  Receipt Date: 20130307
  Transmission Date: 20140127
  Serious: Yes (Other)
  Sender: FDA-Public Use
  Company Number: NSR_01043_2013

PATIENT
  Age: 59 Year
  Sex: Female

DRUGS (2)
  1. VENLAFAXINE (VENLAFAXINE) [Suspect]
     Indication: DEPRESSION
     Dosage: (37.5 MG, [PER DAY]), (150 MG, [PER DAY] TITRATED DOSE OVER 2 WEEKS), (187.5 MG, [PER DAY])
  2. AMLODIPINE [Concomitant]

REACTIONS (4)
  - Hyponatraemia [None]
  - Delirium [None]
  - Catatonia [None]
  - Blood creatinine increased [None]
